FAERS Safety Report 21519217 (Version 1)
Quarter: 2022Q4

REPORT INFORMATION
  Report Type: Spontaneous
  Country: US (occurrence: None)
  Receive Date: 20221027
  Receipt Date: 20221027
  Transmission Date: 20230113
  Serious: Yes (unspecified)
  Sender: FDA-Public Use
  Company Number: None

PATIENT
  Age: 73 Year
  Sex: Female
  Weight: 62.6 kg

DRUGS (6)
  1. PAXLOVID [Suspect]
     Active Substance: NIRMATRELVIR\RITONAVIR
     Indication: COVID-19
     Dosage: OTHER FREQUENCY : BID, MORN, EVENING;?
     Route: 048
     Dates: start: 20220819, end: 20220820
  2. PAXLOVID [Suspect]
     Active Substance: NIRMATRELVIR\RITONAVIR
     Indication: Blood pressure measurement
  3. PAXLOVID [Suspect]
     Active Substance: NIRMATRELVIR\RITONAVIR
     Indication: Blood cholesterol
  4. CARVEDILOL [Concomitant]
     Active Substance: CARVEDILOL
  5. SIMVASTATIN [Concomitant]
     Active Substance: SIMVASTATIN
  6. Baby Chewable Aspirin [Concomitant]

REACTIONS (3)
  - Palpitations [None]
  - Angina pectoris [None]
  - Hypertension [None]

NARRATIVE: CASE EVENT DATE: 20220820
